FAERS Safety Report 4677626-3 (Version None)
Quarter: 2005Q2

REPORT INFORMATION
  Report Type: 
  Country: None (occurrence: None)
  Receive Date: 20050526
  Receipt Date: 20050526
  Transmission Date: 20051028
  Serious: Yes (Life-Threatening)
  Sender: FDA-Public Use
  Company Number: None

PATIENT
  Age: 23 Year
  Sex: Female
  Weight: 63.5036 kg

DRUGS (1)
  1. ELIDEL [Suspect]
     Indication: ROSACEA
     Dosage: FACIAL APPLICATION
     Dates: start: 20030201, end: 20040201

REACTIONS (1)
  - NON-HODGKIN'S LYMPHOMA [None]
